FAERS Safety Report 4391956-4 (Version None)
Quarter: 2004Q3

REPORT INFORMATION
  Report Type: 
  Country: None (occurrence: None)
  Receive Date: 20040701
  Receipt Date: 20040624
  Transmission Date: 20050211
  Serious: Yes (Other)
  Sender: FDA-Public Use
  Company Number: USA040363648

PATIENT
  Sex: Male

DRUGS (2)
  1. FORTEO [Suspect]
  2. DILAUDID [Concomitant]

REACTIONS (3)
  - ASTHENIA [None]
  - DETOXIFICATION [None]
  - WEIGHT DECREASED [None]
